FAERS Safety Report 18660598 (Version 2)
Quarter: 2022Q3

REPORT INFORMATION
  Report Type: Spontaneous
  Country: US (occurrence: US)
  Receive Date: 20201224
  Receipt Date: 20220928
  Transmission Date: 20221027
  Serious: Yes (Death, Other)
  Sender: FDA-Public Use
  Company Number: US-SAARTEMIS-SAC202012210340

PATIENT
  Age: 65 Year
  Sex: Female

DRUGS (3)
  1. ZANTAC [Suspect]
     Active Substance: RANITIDINE HYDROCHLORIDE
     Indication: Dyspepsia
     Dosage: 150 MG, QD
     Route: 065
     Dates: start: 200305, end: 201909
  2. ZANTAC [Suspect]
     Active Substance: RANITIDINE HYDROCHLORIDE
     Indication: Gastrooesophageal reflux disease
  3. ZANTAC [Suspect]
     Active Substance: RANITIDINE HYDROCHLORIDE
     Indication: Gastric ulcer

REACTIONS (7)
  - Bladder cancer [Fatal]
  - Gastric cancer stage III [Fatal]
  - Renal cancer stage III [Not Recovered/Not Resolved]
  - Haematological malignancy [Not Recovered/Not Resolved]
  - Gastrointestinal carcinoma [Not Recovered/Not Resolved]
  - Bone cancer [Not Recovered/Not Resolved]
  - Lung carcinoma cell type unspecified stage III [Not Recovered/Not Resolved]

NARRATIVE: CASE EVENT DATE: 20130901
